FAERS Safety Report 8346251-5 (Version None)
Quarter: 2012Q2

REPORT INFORMATION
  Report Type: 
  Country: None (occurrence: None)
  Receive Date: 20120507
  Receipt Date: 20120426
  Transmission Date: 20120825
  Serious: Yes (Hospitalization)
  Sender: FDA-Public Use
  Company Number: UTC-016090

PATIENT
  Age: 80 Year
  Sex: Female
  Weight: 96.36 kg

DRUGS (2)
  1. COUMADIN [Concomitant]
  2. REMODULIN [Suspect]
     Indication: PULMONARY ARTERIAL HYPERTENSION
     Dosage: 28.8 UG/KG (0.02 UG/KG,1 IN 1 MIN),INTRAVENOUS
     Route: 042
     Dates: start: 20101027

REACTIONS (1)
  - CARDIAC DISORDER [None]
